FAERS Safety Report 8844863 (Version 1)
Quarter: 2012Q4

REPORT INFORMATION
  Report Type: 
  Country: CA (occurrence: CA)
  Receive Date: 20121017
  Receipt Date: 20121017
  Transmission Date: 20130627
  Serious: Yes (Disabling, Other)
  Sender: FDA-Public Use
  Company Number: CA-ELI_LILLY_AND_COMPANY-CA201210001938

PATIENT
  Age: 37 Year
  Sex: Female
  Weight: 82 kg

DRUGS (4)
  1. PROZAC [Suspect]
     Dosage: 40 mg, qd
     Route: 048
  2. LITHIUM CARBONATE [Concomitant]
     Dosage: 600 mg, qd
     Route: 048
  3. LITHIUM CARBONATE [Concomitant]
     Dosage: 40 mg, qd
     Route: 048
  4. LAXATIVES [Concomitant]

REACTIONS (19)
  - Loss of consciousness [Not Recovered/Not Resolved]
  - Abdominal pain upper [Not Recovered/Not Resolved]
  - Confusional state [Not Recovered/Not Resolved]
  - Constipation [Not Recovered/Not Resolved]
  - Coordination abnormal [Not Recovered/Not Resolved]
  - Visual impairment [Not Recovered/Not Resolved]
  - Vertigo [Not Recovered/Not Resolved]
  - Dysarthria [Not Recovered/Not Resolved]
  - Muscle tightness [Not Recovered/Not Resolved]
  - Muscular weakness [Not Recovered/Not Resolved]
  - Pain [Not Recovered/Not Resolved]
  - Nausea [Not Recovered/Not Resolved]
  - Dizziness [Not Recovered/Not Resolved]
  - Dry mouth [Not Recovered/Not Resolved]
  - Muscle twitching [Not Recovered/Not Resolved]
  - Fatigue [Not Recovered/Not Resolved]
  - Restlessness [Not Recovered/Not Resolved]
  - Tremor [Not Recovered/Not Resolved]
  - Vision blurred [Not Recovered/Not Resolved]
